FAERS Safety Report 14845838 (Version 1)
Quarter: 2018Q2

REPORT INFORMATION
  Report Type: Spontaneous
  Country: US (occurrence: US)
  Receive Date: 20180504
  Receipt Date: 20180504
  Transmission Date: 20180711
  Serious: Yes (Death, Other)
  Sender: FDA-Public Use
  Company Number: US-ALKEM LABORATORIES LIMITED-US-ALKEM-2018-02792

PATIENT
  Age: 7 Month

DRUGS (3)
  1. PREDNISONE. [Suspect]
     Active Substance: PREDNISONE
     Indication: PYODERMA GANGRENOSUM
     Dosage: UNK
     Route: 048
  2. DAPSONE. [Suspect]
     Active Substance: DAPSONE
     Indication: PYODERMA GANGRENOSUM
     Dosage: UNK
     Route: 065
  3. TRIAMCINOLONE ACETONIDE. [Suspect]
     Active Substance: TRIAMCINOLONE ACETONIDE
     Indication: PYODERMA GANGRENOSUM
     Dosage: UNK
     Route: 026

REACTIONS (2)
  - Disease recurrence [Fatal]
  - Drug ineffective [Unknown]
